FAERS Safety Report 20371767 (Version 6)
Quarter: 2022Q2

REPORT INFORMATION
  Report Type: Spontaneous
  Country: CA (occurrence: CA)
  Receive Date: 20220124
  Receipt Date: 20220620
  Transmission Date: 20220720
  Serious: Yes (Other)
  Sender: FDA-Public Use
  Company Number: CA-PFIZER INC-202100975696

PATIENT
  Age: 45 Year
  Sex: Male

DRUGS (10)
  1. ZIRABEV [Suspect]
     Active Substance: BEVACIZUMAB-BVZR
     Indication: Glioblastoma
     Dosage: 1200 MG, EVERY 3 WEEKS
     Route: 042
     Dates: start: 20210813, end: 20210813
  2. ZIRABEV [Suspect]
     Active Substance: BEVACIZUMAB-BVZR
     Dosage: 1200 MG, Q 3 WEEKS
     Route: 042
     Dates: start: 20210813
  3. ZIRABEV [Suspect]
     Active Substance: BEVACIZUMAB-BVZR
     Dosage: 1200 MG, EVERY 3 WEEKS
     Route: 042
     Dates: start: 20210902, end: 20210902
  4. ZIRABEV [Suspect]
     Active Substance: BEVACIZUMAB-BVZR
     Dosage: 1200 MG, EVERY 3 WEEKS
     Route: 042
     Dates: start: 20211015, end: 20211015
  5. ZIRABEV [Suspect]
     Active Substance: BEVACIZUMAB-BVZR
     Dosage: 1200 MG, EVERY 3 WEEKS
     Route: 042
     Dates: start: 20211104, end: 20211104
  6. ZIRABEV [Suspect]
     Active Substance: BEVACIZUMAB-BVZR
     Dosage: 1200 MG, EVERY 3 WEEKS
     Route: 042
     Dates: start: 20211126
  7. ZIRABEV [Suspect]
     Active Substance: BEVACIZUMAB-BVZR
     Dosage: 1200 MG Q 3 WEEKS
     Route: 042
     Dates: start: 20220614
  8. DEXAMETHASONE [Concomitant]
     Active Substance: DEXAMETHASONE
     Dosage: UNK
  9. DEXAMETHASONE [Concomitant]
     Active Substance: DEXAMETHASONE
     Dosage: UNK
     Dates: start: 20210830
  10. LOMUSTINE [Concomitant]
     Active Substance: LOMUSTINE
     Dosage: UNK

REACTIONS (5)
  - Seizure [Unknown]
  - Off label use [Unknown]
  - Inappropriate schedule of product administration [Unknown]
  - Infusion site extravasation [Unknown]
  - Heart rate decreased [Recovered/Resolved]

NARRATIVE: CASE EVENT DATE: 20210902
